FAERS Safety Report 25807187 (Version 1)
Quarter: 2025Q3

REPORT INFORMATION
  Report Type: Spontaneous
  Country: US (occurrence: None)
  Receive Date: 20250915
  Receipt Date: 20250915
  Transmission Date: 20251021
  Serious: Yes (Hospitalization)
  Sender: FDA-CTU
  Company Number: None

PATIENT
  Age: 70 Year
  Sex: Female

DRUGS (8)
  1. BIMZELX [Suspect]
     Active Substance: BIMEKIZUMAB-BKZX
     Indication: Psoriasis
     Dosage: 2 ML EVERY 4 WEEKS SUBCUTANEOUS
     Route: 058
     Dates: start: 20250827
  2. IBUPROFEN [Concomitant]
     Active Substance: IBUPROFEN
  3. ALBUTEROL SULFATE [Concomitant]
     Active Substance: ALBUTEROL SULFATE
  4. ESTRADIOL [Concomitant]
     Active Substance: ESTRADIOL
  5. LISINOPRIL HCTZ 20/12.5 [Concomitant]
  6. LEVOTHYROXINE 0.150MG [Concomitant]
  7. ESCITALOPRAM OXALATE [Concomitant]
     Active Substance: ESCITALOPRAM OXALATE
  8. SIMVASTATIN [Concomitant]
     Active Substance: SIMVASTATIN

REACTIONS (2)
  - Dizziness [None]
  - Urinary tract infection [None]

NARRATIVE: CASE EVENT DATE: 20250830
